FAERS Safety Report 20524887 (Version 2)
Quarter: 2022Q4

REPORT INFORMATION
  Report Type: Report from Study
  Country: US (occurrence: US)
  Receive Date: 20220228
  Receipt Date: 20221007
  Transmission Date: 20230113
  Serious: Yes (Death, Hospitalization, Other)
  Sender: FDA-Public Use
  Company Number: US-MYLANLABS-2022M1014586

PATIENT
  Age: 53 Year
  Sex: Female

DRUGS (20)
  1. CLOZAPINE [Suspect]
     Active Substance: CLOZAPINE
     Indication: Product used for unknown indication
     Dosage: UNK
     Route: 065
  2. CLOZAPINE [Suspect]
     Active Substance: CLOZAPINE
     Dosage: 150 MILLIGRAM, QD(150 MG TBDI, ORAL 2 EACH DAILY)
     Route: 048
     Dates: start: 20190422, end: 20190529
  3. CLOZAPINE [Suspect]
     Active Substance: CLOZAPINE
     Dosage: 100 MILLIGRAM, HS (100 MG TBDI, ORAL 3 EACH BEDTIME)
     Route: 048
     Dates: start: 20190528, end: 20200825
  4. CLOZAPINE [Suspect]
     Active Substance: CLOZAPINE
     Dosage: 100 MILLIGRAM, HS (100 MG TBDI, ORAL 2 EACH BEDTIME)
     Route: 048
     Dates: start: 20190716, end: 20200825
  5. CLOZAPINE [Suspect]
     Active Substance: CLOZAPINE
     Dosage: 25 MILLIGRAM, HS (25 MG TBDI, ORAL 3 EACH BEDTIME)
     Route: 048
     Dates: start: 20190716, end: 20200825
  6. CLOZAPINE [Suspect]
     Active Substance: CLOZAPINE
     Dosage: 100 MILLIGRAM, HS (100 MG TBDI, ORAL 2 EACH BEDTIME)
     Route: 048
     Dates: start: 20190918, end: 20200825
  7. CLOZAPINE [Suspect]
     Active Substance: CLOZAPINE
     Dosage: 25 MILLIGRAM, HS(25 MG TBDI, ORAL 2 EACH BEDTIME)
     Route: 048
     Dates: start: 20190918, end: 20200825
  8. CLOZAPINE [Suspect]
     Active Substance: CLOZAPINE
     Dosage: 200 MILLIGRAM, HS(200 MG TBDI, ORAL 1 EACH BEDTIME)
     Route: 048
     Dates: start: 20200825, end: 20200825
  9. CLOZAPINE [Suspect]
     Active Substance: CLOZAPINE
     Dosage: 150 MILLIGRAM, HS (150 MG TBDI, ORAL 1 EACH BEDTIME)
     Route: 048
     Dates: start: 20201016, end: 20201016
  10. CLOZAPINE [Suspect]
     Active Substance: CLOZAPINE
     Dosage: 200 MILLIGRAM, HS (200 MG TBDI, ORAL 1 EACH BEDTIME)
     Route: 048
     Dates: start: 20201020, end: 20201020
  11. CLOZAPINE [Suspect]
     Active Substance: CLOZAPINE
     Dosage: 100 MILLIGRAM, HS(100 MG TBDI, ORAL 1 EACH BEDTIME)
     Route: 048
     Dates: start: 20201027, end: 20201027
  12. CLOZAPINE [Suspect]
     Active Substance: CLOZAPINE
     Dosage: 100 MILLIGRAM, HS (100 MG TBDI, ORAL 2 EACH BEDTIME)
     Route: 048
     Dates: start: 20201027, end: 20201027
  13. CLOZAPINE [Suspect]
     Active Substance: CLOZAPINE
     Dosage: 25 MILLIGRAM, HS (25 MG TBDI, ORAL 2 EACH BEDTIME)
     Route: 048
     Dates: start: 20200825, end: 20201016
  14. CLOZAPINE [Suspect]
     Active Substance: CLOZAPINE
     Dosage: 150 MILLIGRAM, HS (150 MG TBDI, ORAL 1 EACH BEDTIME)
     Route: 048
     Dates: start: 20201027, end: 20201027
  15. CLOZAPINE [Suspect]
     Active Substance: CLOZAPINE
     Dosage: 25 MILLIGRAM, HS (25 MG TBDI, ORAL 2 EACH BEDTIME)
     Route: 048
     Dates: start: 20201027, end: 20201027
  16. CLOZAPINE [Suspect]
     Active Substance: CLOZAPINE
     Dosage: 100 MILLIGRAM, HS (100 MG TBDI, ORAL 2 EACH BEDTIME)
     Route: 048
     Dates: start: 20201027, end: 20211110
  17. CLOZAPINE [Suspect]
     Active Substance: CLOZAPINE
     Dosage: 100 MILLIGRAM, HS (100 MG TBDI, ORAL 3 EACH BEDTIME)
     Route: 048
     Dates: start: 20201202, end: 20211110
  18. CLOZAPINE [Suspect]
     Active Substance: CLOZAPINE
     Dosage: 25 MILLIGRAM, HS(25 MG TBDI, ORAL 2 EACH BEDTIME)
     Route: 048
     Dates: start: 20201027, end: 20201202
  19. CLOZAPINE [Suspect]
     Active Substance: CLOZAPINE
     Dosage: 100 MILLIGRAM, HS(100 MG TBDI, ORAL 3 EACH BEDTIME)
     Route: 048
     Dates: start: 20211110, end: 20211115
  20. CLOZAPINE [Suspect]
     Active Substance: CLOZAPINE
     Dosage: UNK
     Route: 065
     Dates: end: 202111

REACTIONS (5)
  - Death [Fatal]
  - Hospitalisation [Recovered/Resolved]
  - Psychotic disorder [Unknown]
  - Diarrhoea [Unknown]
  - Circumstance or information capable of leading to medication error [Unknown]

NARRATIVE: CASE EVENT DATE: 20211223
